FAERS Safety Report 10927046 (Version 4)
Quarter: 2015Q3

REPORT INFORMATION
  Report Type: Spontaneous
  Country: US (occurrence: US)
  Receive Date: 20150318
  Receipt Date: 20150908
  Transmission Date: 20151125
  Serious: No
  Sender: FDA-Public Use
  Company Number: US-GLAXOSMITHKLINE-US2015GSK017547

PATIENT
  Age: 62 Year
  Sex: Female

DRUGS (16)
  1. VOTRIENT [Suspect]
     Active Substance: PAZOPANIB HYDROCHLORIDE
     Indication: RENAL CANCER
     Dosage: 600 MG, QD
     Dates: start: 201411
  2. METHYLPHENIDATE. [Concomitant]
     Active Substance: METHYLPHENIDATE
  3. LEXAPRO [Concomitant]
     Active Substance: ESCITALOPRAM OXALATE
  4. PRILOSEC [Concomitant]
     Active Substance: OMEPRAZOLE MAGNESIUM
  5. METOPROLOL TARTRATE. [Concomitant]
     Active Substance: METOPROLOL TARTRATE
  6. MACROBIN [Concomitant]
  7. TYLENOL [Concomitant]
     Active Substance: ACETAMINOPHEN
  8. ZOFRAN [Concomitant]
     Active Substance: ONDANSETRON HYDROCHLORIDE
  9. VITAMIN B12 [Concomitant]
     Active Substance: CYANOCOBALAMIN
  10. VOTRIENT [Suspect]
     Active Substance: PAZOPANIB HYDROCHLORIDE
     Indication: MALIGNANT URINARY TRACT NEOPLASM
     Dosage: 400 MG, QD
  11. MICARDIS [Concomitant]
     Active Substance: TELMISARTAN
  12. METOPROLOL [Concomitant]
     Active Substance: METOPROLOL
  13. ANASTROZOLE. [Concomitant]
     Active Substance: ANASTROZOLE
  14. VOTRIENT [Suspect]
     Active Substance: PAZOPANIB HYDROCHLORIDE
     Dosage: 600 MG, QD
     Route: 048
     Dates: start: 20141113
  15. VOTRIENT [Suspect]
     Active Substance: PAZOPANIB HYDROCHLORIDE
     Dosage: 300 MG, QD
     Route: 048
     Dates: start: 201410
  16. OMEPRAZOLE. [Concomitant]
     Active Substance: OMEPRAZOLE

REACTIONS (8)
  - Weight decreased [Unknown]
  - Diarrhoea [Unknown]
  - Depression [Unknown]
  - Decreased appetite [Unknown]
  - Inappropriate schedule of drug administration [Unknown]
  - Fatigue [Unknown]
  - Dizziness [Unknown]
  - Anxiety [Unknown]

NARRATIVE: CASE EVENT DATE: 201410
